FAERS Safety Report 14434767 (Version 4)
Quarter: 2018Q4

REPORT INFORMATION
  Report Type: Spontaneous
  Country: IT (occurrence: IT)
  Receive Date: 20180125
  Receipt Date: 20181011
  Transmission Date: 20190204
  Serious: Yes (Other)
  Sender: FDA-Public Use
  Company Number: IT-SUN PHARMACEUTICAL INDUSTRIES LTD-2018RR-161009

PATIENT
  Age: 70 Year
  Sex: Male

DRUGS (14)
  1. OXALIPLATIN. [Suspect]
     Active Substance: OXALIPLATIN
     Dosage: UNK ()
     Route: 065
     Dates: start: 200908, end: 200911
  2. LEUCOVORIN. [Concomitant]
     Active Substance: LEUCOVORIN
     Indication: ADENOCARCINOMA OF COLON
     Dosage: UNK ()
     Route: 065
     Dates: start: 200908, end: 200911
  3. OXALIPLATIN. [Suspect]
     Active Substance: OXALIPLATIN
     Indication: ADENOCARCINOMA OF COLON
     Dosage: ON DAY 1, FOR 7 CYCLES, CYCLICAL
     Route: 065
     Dates: start: 201204
  4. PANITUMUMAB [Suspect]
     Active Substance: PANITUMUMAB
     Dosage: 6 MG/KG, Q2WK (EVERY 14 DAYS)
     Route: 065
     Dates: start: 201410, end: 201506
  5. FLUOROURACIL. [Suspect]
     Active Substance: FLUOROURACIL
     Dosage: UNK ()
     Route: 065
     Dates: start: 200908, end: 200909
  6. BEVACIZUMAB. [Suspect]
     Active Substance: BEVACIZUMAB
     Indication: ADENOCARCINOMA OF COLON
     Dosage: 7.5 MG/KG, CYCLICAL
     Route: 065
     Dates: start: 201204, end: 201312
  7. IRINOTECAN [Suspect]
     Active Substance: IRINOTECAN
     Indication: ADENOCARCINOMA OF COLON
     Dosage: 180 MG/M2, Q2WK
     Route: 065
     Dates: start: 201410, end: 201501
  8. FOLINIC ACID [Suspect]
     Active Substance: LEUCOVORIN
     Indication: ADENOCARCINOMA OF COLON
     Dosage: AS A 2-H INFUSION ON DAY 1
     Route: 065
     Dates: start: 201410, end: 201501
  9. CAPECITABINE. [Suspect]
     Active Substance: CAPECITABINE
     Indication: ADENOCARCINOMA OF COLON
     Dosage: 1000 MG/M2, Q3WK (FROM D1-14 EVERY 21D )
     Route: 065
     Dates: start: 201204, end: 201312
  10. PEGYLATED LIPOSOMAL IRINOTECAN [Suspect]
     Active Substance: IRINOTECAN HYDROCHLORIDE
     Indication: ADENOCARCINOMA OF COLON
  11. PANITUMUMAB [Suspect]
     Active Substance: PANITUMUMAB
     Indication: ADENOCARCINOMA OF COLON
     Dosage: 6 MG/KG, Q2WK (EVERY 14 DAYS)
     Route: 065
     Dates: start: 201410
  12. PANITUMUMAB [Suspect]
     Active Substance: PANITUMUMAB
     Dosage: 60% OF THE ORIGINAL DOSE, Q3WK ()
     Route: 065
     Dates: start: 201506
  13. FLUOROURACIL. [Suspect]
     Active Substance: FLUOROURACIL
     Indication: ADENOCARCINOMA OF COLON
     Dosage: D1:400/MG/M^2, THEN 2400 MG/M^2
     Route: 041
     Dates: start: 201410, end: 201501
  14. PEGYLATED LIPOSOMAL IRINOTECAN [Suspect]
     Active Substance: IRINOTECAN HYDROCHLORIDE
     Indication: OFF LABEL USE
     Dosage: 180 MG/M2, 2X A WEEK
     Route: 065
     Dates: start: 201410, end: 201501

REACTIONS (8)
  - Drug effective for unapproved indication [Unknown]
  - Palmar-plantar erythrodysaesthesia syndrome [Unknown]
  - Neuropathy peripheral [Unknown]
  - Neutropenia [Unknown]
  - Skin toxicity [Unknown]
  - Diarrhoea [Unknown]
  - Asthenia [Unknown]
  - Off label use [Unknown]

NARRATIVE: CASE EVENT DATE: 2014
